FAERS Safety Report 21512231 (Version 2)
Quarter: 2022Q4

REPORT INFORMATION
  Report Type: Report from Study
  Country: US (occurrence: US)
  Receive Date: 20221027
  Receipt Date: 20221121
  Transmission Date: 20230112
  Serious: Yes (Other)
  Sender: FDA-Public Use
  Company Number: US-ACADIA PHARMACEUTICALS INC.-ACA-2022-PIM-003589

PATIENT
  Sex: Male

DRUGS (11)
  1. NUPLAZID [Suspect]
     Active Substance: PIMAVANSERIN TARTRATE
     Indication: Parkinson^s disease psychosis
     Dosage: 34 MILLIGRAM, QD
     Route: 048
     Dates: start: 202209, end: 2022
  2. ICAPS [MINERALS NOS;VITAMINS NOS] [Concomitant]
  3. ELIQUIS [Concomitant]
     Active Substance: APIXABAN
  4. MULTAQ [Concomitant]
     Active Substance: DRONEDARONE
  5. HYDROCHLOROTHIAZIDE\IRBESARTAN [Concomitant]
     Active Substance: HYDROCHLOROTHIAZIDE\IRBESARTAN
  6. AMLODIPINE + ATORVASTATIN [Concomitant]
  7. DONEPEZIL HYDROCHLORIDE [Concomitant]
     Active Substance: DONEPEZIL HYDROCHLORIDE
  8. CLOPIDOGREL [Concomitant]
     Active Substance: CLOPIDOGREL BISULFATE
  9. MELATONIN;THEANINE [Concomitant]
  10. CLONAZEPAM [Concomitant]
     Active Substance: CLONAZEPAM
  11. ROSUVASTATIN/EZETIMIBE TEVA [Concomitant]

REACTIONS (2)
  - Haemorrhage [Unknown]
  - Respiratory rate decreased [Unknown]
